FAERS Safety Report 9470817 (Version 1)
Quarter: 2013Q3

REPORT INFORMATION
  Report Type: Spontaneous
  Country: US (occurrence: None)
  Receive Date: 20130820
  Receipt Date: 20130820
  Transmission Date: 20140515
  Serious: Yes (Hospitalization, Disabling)
  Sender: FDA-Public Use
  Company Number: None

PATIENT
  Age: 8 Month
  Sex: Male
  Weight: 90.72 kg

DRUGS (18)
  1. SEROQUEL [Suspect]
     Indication: DEPRESSION
     Dosage: VERY AMT. DOSES
     Route: 048
     Dates: start: 200802, end: 201205
  2. CITALOPRAM [Concomitant]
  3. SIMVASTATIN [Concomitant]
  4. CELEBREX [Concomitant]
  5. LEVOTHYROXINE [Concomitant]
  6. AMLODIPINE [Concomitant]
  7. AMPHETAMINE [Concomitant]
  8. METFORMIN [Concomitant]
  9. OXCARBAZEPINE [Concomitant]
  10. REGLAN [Concomitant]
  11. ALPRAZOLAM [Concomitant]
  12. HYDROCODONE [Concomitant]
  13. GLIMEPIRIDE [Concomitant]
  14. POTASSIUM [Concomitant]
  15. RANITIDINE [Concomitant]
  16. ONDANSETRON [Concomitant]
  17. OMEPRAZOLE [Concomitant]
  18. ACID REDUCER [Concomitant]

REACTIONS (15)
  - Type 1 diabetes mellitus [None]
  - Hypertension [None]
  - Hepatic steatosis [None]
  - Impaired gastric emptying [None]
  - Vomiting [None]
  - Accident [None]
  - Coma [None]
  - Thyroid disorder [None]
  - Red blood cell count decreased [None]
  - Suicidal ideation [None]
  - Homicidal ideation [None]
  - Impaired work ability [None]
  - Weight decreased [None]
  - Nerve injury [None]
  - Arthritis [None]
